FAERS Safety Report 17561080 (Version 1)
Quarter: 2020Q1

REPORT INFORMATION
  Report Type: Spontaneous
  Country: US (occurrence: US)
  Receive Date: 20200312
  Receipt Date: 20200312
  Transmission Date: 20200409
  Serious: Yes (Hospitalization)
  Sender: FDA-Public Use
  Company Number: None

PATIENT
  Age: 32 Year
  Sex: Male

DRUGS (1)
  1. WARFARIN (WARFARIN NA (EXELAN) 2MG TAB) [Suspect]
     Active Substance: WARFARIN
     Indication: ATRIAL FIBRILLATION
     Route: 048
     Dates: start: 20190529

REACTIONS (6)
  - Injury [None]
  - Pain in extremity [None]
  - Fall [None]
  - Swelling [None]
  - International normalised ratio increased [None]
  - Haematoma [None]

NARRATIVE: CASE EVENT DATE: 20200304
